FAERS Safety Report 5990129-9 (Version None)
Quarter: 2008Q4

REPORT INFORMATION
  Report Type: 
  Country: None (occurrence: None)
  Receive Date: 20081211
  Receipt Date: 20081208
  Transmission Date: 20090506
  Serious: Yes (Other)
  Sender: FDA-Public Use
  Company Number: US-ASTRAZENECA-2008UW27231

PATIENT
  Age: 74 Year
  Sex: Female

DRUGS (5)
  1. PULMICORT RESPULES [Suspect]
     Indication: CHRONIC OBSTRUCTIVE PULMONARY DISEASE
     Dosage: 0.5 MG/2ML TWICE DAILY
     Route: 055
     Dates: start: 20081001
  2. DUONEB [Concomitant]
  3. FUROSEMIDE [Concomitant]
  4. OXYGEN [Concomitant]
  5. VITAMINS [Concomitant]

REACTIONS (9)
  - ALOPECIA [None]
  - ANAEMIA [None]
  - BLOOD IRON DECREASED [None]
  - BREAST CYST DRAINAGE [None]
  - DYSPNOEA [None]
  - HAIR TEXTURE ABNORMAL [None]
  - HEADACHE [None]
  - OXYGEN SATURATION DECREASED [None]
  - PLATELET COUNT DECREASED [None]
